FAERS Safety Report 23694726 (Version 4)
Quarter: 2024Q2

REPORT INFORMATION
  Report Type: Spontaneous
  Country: US (occurrence: US)
  Receive Date: 20240402
  Receipt Date: 20240513
  Transmission Date: 20240716
  Serious: Yes (Death, Other)
  Sender: FDA-Public Use
  Company Number: US-SA-SAC20240329000604

PATIENT
  Age: 62 Year
  Sex: Female
  Weight: 48 kg

DRUGS (11)
  1. KEVZARA [Suspect]
     Active Substance: SARILUMAB
     Indication: Rheumatoid arthritis
     Dosage: 200 MG, QOW
     Route: 058
     Dates: start: 20220802
  2. KEVZARA [Suspect]
     Active Substance: SARILUMAB
     Indication: Neoplasm malignant
  3. KEVZARA [Suspect]
     Active Substance: SARILUMAB
     Indication: Breast cancer female
  4. KEVZARA [Suspect]
     Active Substance: SARILUMAB
     Indication: Arthritis
  5. CAPECITABINE [Concomitant]
     Active Substance: CAPECITABINE
     Dosage: UNK
     Route: 065
     Dates: start: 202403
  6. TUKYSA [Concomitant]
     Active Substance: TUCATINIB
     Dosage: UNK
     Route: 065
     Dates: start: 202403
  7. VICKS DAYQUIL/NYQUIL [Concomitant]
     Dosage: UNK
     Route: 065
  8. AFERIN [Concomitant]
     Dosage: UNK
     Route: 065
  9. ACETAMINOPHEN\HYDROCODONE [Concomitant]
     Active Substance: ACETAMINOPHEN\HYDROCODONE
     Dosage: UNK
     Route: 065
  10. AMEN [Concomitant]
     Active Substance: MEDROXYPROGESTERONE ACETATE
     Dosage: UNK
  11. ADVIL PM [DIPHENHYDRAMINE CITRATE;IBUPROFEN] [Concomitant]
     Dosage: UNK

REACTIONS (4)
  - Death [Fatal]
  - Neoplasm malignant [Unknown]
  - Asthenia [Recovering/Resolving]
  - Product use in unapproved indication [Unknown]

NARRATIVE: CASE EVENT DATE: 20220802
